FAERS Safety Report 6970962-7 (Version None)
Quarter: 2010Q3

REPORT INFORMATION
  Report Type: 
  Country: None (occurrence: None)
  Receive Date: 20100824
  Receipt Date: 20100308
  Transmission Date: 20110219
  Serious: Yes (Other)
  Sender: FDA-Public Use
  Company Number: 201001813

PATIENT
  Age: 58 Year
  Sex: Male
  Weight: 88.4 kg

DRUGS (4)
  1. NORVASC [Suspect]
     Indication: CARDIOVASCULAR DISORDER
     Dosage: 10 MG, 2X/DAY, ORAL
     Route: 048
     Dates: start: 20090101, end: 20091101
  2. PROCARDIA [Concomitant]
  3. PROTONIX [Concomitant]
  4. LIPITOR [Concomitant]

REACTIONS (3)
  - DRUG INEFFECTIVE [None]
  - OEDEMA PERIPHERAL [None]
  - SWELLING [None]
